FAERS Safety Report 13837529 (Version 1)
Quarter: 2017Q3

REPORT INFORMATION
  Report Type: Other
  Country: GB (occurrence: JP)
  Receive Date: 20170804
  Receipt Date: 20170804
  Transmission Date: 20171127
  Serious: Yes (Other)
  Sender: FDA-Public Use
  Company Number: JP-INTERNATIONAL MEDICATION SYSTEMS, LIMITED-2024195

PATIENT
  Age: 26 Year
  Sex: Female

DRUGS (4)
  1. MIDAZOLAM HYDROCHLORIDE. [Concomitant]
     Active Substance: MIDAZOLAM HYDROCHLORIDE
     Route: 042
  2. EPINEPHRINE 1:80,000 [Suspect]
     Active Substance: EPINEPHRINE
     Indication: LOCAL ANAESTHESIA
  3. METHYLPHENIDATE HYDROCHLORIDE. [Interacting]
     Active Substance: METHYLPHENIDATE HYDROCHLORIDE
  4. LIDOCAINE HYDROCHLORIDE 2% [Concomitant]
     Active Substance: LIDOCAINE HYDROCHLORIDE

REACTIONS (2)
  - Drug interaction [Unknown]
  - Hyperventilation [Unknown]
